FAERS Safety Report 9728438 (Version 1)
Quarter: 2013Q4

REPORT INFORMATION
  Report Type: Spontaneous
  Country: US (occurrence: US)
  Receive Date: 20131204
  Receipt Date: 20131204
  Transmission Date: 20140711
  Serious: Yes (Hospitalization)
  Sender: FDA-Public Use
  Company Number: US-NOVOPROD-393583

PATIENT
  Age: 69 Year
  Sex: Male
  Weight: 133.79 kg

DRUGS (6)
  1. VICTOZA [Suspect]
     Indication: TYPE 2 DIABETES MELLITUS
     Dosage: 0.6 MG DAILY FOR 6 WEEKS
     Route: 058
     Dates: start: 201305
  2. VICTOZA [Suspect]
     Dosage: 1.2 MG DAILY
     Route: 058
     Dates: end: 201311
  3. VICTOZA [Suspect]
     Dosage: 1.8 MG DAILY
     Route: 058
     Dates: start: 201311, end: 20131114
  4. LANTUS [Concomitant]
     Indication: TYPE 2 DIABETES MELLITUS
     Dosage: UNKNOWN
  5. LASIX                              /00032601/ [Concomitant]
     Indication: CARDIAC FAILURE
     Dosage: UNKNOWN
  6. FLUOROURACIL [Concomitant]
     Indication: SKIN CANCER
     Dosage: APPLY 5% CREAM TWICE A DAY FOR 10 DAYS
     Route: 061
     Dates: start: 20131106

REACTIONS (3)
  - Cardiac failure congestive [Recovering/Resolving]
  - Neck mass [Recovered/Resolved]
  - Abdominal pain upper [Recovering/Resolving]
